FAERS Safety Report 5300652-8 (Version None)
Quarter: 2007Q2

REPORT INFORMATION
  Report Type: 
  Country: None (occurrence: None)
  Receive Date: 20070418
  Receipt Date: 20070406
  Transmission Date: 20071010
  Serious: Yes (Hospitalization)
  Sender: FDA-Public Use
  Company Number: HQWYE896106APR07

PATIENT
  Age: 86 Year
  Sex: Male

DRUGS (6)
  1. CORDARONE [Suspect]
     Dosage: UNKNOWN
     Route: 048
  2. NPH INSULIN [Concomitant]
     Dosage: UNKNOWN
     Route: 058
  3. OMEPRAZOLE [Concomitant]
     Route: 048
  4. LASIX [Concomitant]
     Route: 048
  5. PREVISCAN [Interacting]
     Dosage: UNKNOWN
     Route: 048
  6. NEXEN [Interacting]
     Dosage: UNKNOWN
     Route: 048
     Dates: end: 20070126

REACTIONS (5)
  - DRUG INTERACTION [None]
  - FALL [None]
  - INTERNATIONAL NORMALISED RATIO INCREASED [None]
  - MALAISE [None]
  - RECTAL HAEMORRHAGE [None]
